FAERS Safety Report 4920203-7 (Version None)
Quarter: 2006Q1

REPORT INFORMATION
  Report Type: 
  Country: None (occurrence: None)
  Receive Date: 20060223
  Receipt Date: 20060214
  Transmission Date: 20060701
  Serious: No
  Sender: FDA-Public Use
  Company Number: 2006UW02491

PATIENT
  Age: 52 Year
  Sex: Female
  Weight: 71.7 kg

DRUGS (5)
  1. SEROQUEL [Suspect]
     Indication: BIPOLAR II DISORDER
     Route: 048
  2. CYMBALTA [Concomitant]
  3. XANAX [Concomitant]
  4. MIRAPEX [Concomitant]
  5. AMBIEN [Concomitant]

REACTIONS (2)
  - SOMNOLENCE [None]
  - WHITE BLOOD CELL COUNT DECREASED [None]
